FAERS Safety Report 10186152 (Version 1)
Quarter: 2014Q2

REPORT INFORMATION
  Report Type: Spontaneous
  Country: AU (occurrence: AU)
  Receive Date: 20140521
  Receipt Date: 20140521
  Transmission Date: 20141212
  Serious: Yes (Other)
  Sender: FDA-Public Use
  Company Number: ALCN2014AU002947

PATIENT
  Age: 59 Year
  Sex: Female

DRUGS (2)
  1. MAXIDEX [Suspect]
     Indication: UVEITIS
     Route: 047
  2. TRIESENCE [Suspect]
     Indication: UVEITIS
     Route: 031

REACTIONS (3)
  - Intraocular pressure fluctuation [Unknown]
  - Vitreous haemorrhage [Unknown]
  - Intraocular melanoma [Unknown]
